FAERS Safety Report 23037626 (Version 1)
Quarter: 2023Q4

REPORT INFORMATION
  Report Type: Spontaneous
  Country: US (occurrence: None)
  Receive Date: 20231005
  Receipt Date: 20231005
  Transmission Date: 20240110
  Serious: No
  Sender: FDA-Public Use
  Company Number: None

PATIENT
  Age: 65 Year
  Sex: Female
  Weight: 81 kg

DRUGS (11)
  1. EVENITY [Suspect]
     Active Substance: ROMOSOZUMAB-AQQG
     Indication: Osteoporosis
     Dosage: OTHER FREQUENCY : ONCE A MONTH;?
     Route: 058
     Dates: start: 20230628, end: 20230803
  2. FLEXERIL [Concomitant]
     Active Substance: CYCLOBENZAPRINE HYDROCHLORIDE
  3. Vitamins B12 [Concomitant]
  4. VITAMIN D3 [Concomitant]
     Active Substance: CHOLECALCIFEROL
  5. E [Concomitant]
  6. BIOTIN [Concomitant]
     Active Substance: BIOTIN
  7. Collagen peptides [Concomitant]
  8. CALCIUM CITRATE [Concomitant]
     Active Substance: CALCIUM CITRATE
  9. FISH OIL [Concomitant]
     Active Substance: FISH OIL
  10. LUTEIN [Concomitant]
     Active Substance: LUTEIN
  11. ZINC [Concomitant]
     Active Substance: ZINC

REACTIONS (2)
  - Alopecia [None]
  - Visual impairment [None]

NARRATIVE: CASE EVENT DATE: 20230901
